FAERS Safety Report 8314273-6 (Version None)
Quarter: 2012Q1

REPORT INFORMATION
  Report Type: 
  Country: None (occurrence: None)
  Receive Date: 20120315
  Receipt Date: 20110531
  Transmission Date: 20120608
  Serious: No
  Sender: FDA-Public Use
  Company Number: PHHY2011US47061

PATIENT
  Sex: Female

DRUGS (7)
  1. IBUPROFEN [Concomitant]
  2. CALCIUM WITH VITAMIN D (CALCIUM PHOSPHATE, CALCIUM SODIUM LACTATE, ERG [Concomitant]
  3. OMEPRAZOLE [Concomitant]
  4. DICYCLOMINE [Concomitant]
  5. ALBUTEROL [Concomitant]
  6. GILENYA [Suspect]
     Dosage: 0.5 MG, QD, ORAL
     Route: 048
  7. SINGULAIR [Concomitant]

REACTIONS (3)
  - LIMB INJURY [None]
  - PAIN IN EXTREMITY [None]
  - ARTHRALGIA [None]
